FAERS Safety Report 6124114-3 (Version None)
Quarter: 2009Q1

REPORT INFORMATION
  Report Type: 
  Country: None (occurrence: None)
  Receive Date: 20090319
  Receipt Date: 20090311
  Transmission Date: 20090719
  Serious: Yes (Hospitalization)
  Sender: FDA-Public Use
  Company Number: DE-ROCHE-621678

PATIENT
  Age: 82 Year
  Sex: Male
  Weight: 70 kg

DRUGS (6)
  1. ROCEPHIN [Suspect]
     Indication: ENTERITIS
     Route: 042
     Dates: start: 20081027, end: 20081106
  2. TOREM 5 [Suspect]
     Dosage: ADMINISTRATION FOR MANY YEARS
     Route: 048
     Dates: end: 20081202
  3. ARICEPT [Concomitant]
     Indication: DEMENTIA
     Dosage: ADMINISTRATION FOR MANY YEARS
     Route: 048
  4. BELOC ZOK MITE [Concomitant]
     Dosage: ADMINISTRATION FOR MANY YEARS
     Route: 048
  5. CITALOPRAM HYDROBROMIDE [Concomitant]
     Indication: DEPRESSION
     Dosage: ADMINISTRATION FOR MANY YEARS
     Route: 048
  6. ISCOVER [Concomitant]
     Route: 048
     Dates: start: 20080101

REACTIONS (4)
  - DEHYDRATION [None]
  - DIARRHOEA [None]
  - PSEUDOMEMBRANOUS COLITIS [None]
  - RENAL FAILURE ACUTE [None]
